FAERS Safety Report 25020186 (Version 1)
Quarter: 2025Q1

REPORT INFORMATION
  Report Type: Spontaneous
  Country: JP (occurrence: JP)
  Receive Date: 20250227
  Receipt Date: 20250227
  Transmission Date: 20250408
  Serious: Yes (Other)
  Sender: PFIZER
  Company Number: JP-ONO-2025JP003270

PATIENT
  Age: 61 Year
  Sex: Male

DRUGS (7)
  1. BRAFTOVI [Suspect]
     Active Substance: ENCORAFENIB
     Indication: Malignant melanoma
     Route: 048
     Dates: start: 20231127, end: 20231127
  2. MEKTOVI [Suspect]
     Active Substance: BINIMETINIB
     Indication: Malignant melanoma
     Route: 048
     Dates: start: 20231127, end: 20231127
  3. OPDIVO [Suspect]
     Active Substance: NIVOLUMAB
     Indication: Malignant melanoma
     Route: 041
     Dates: start: 20170130
  4. OPDIVO [Suspect]
     Active Substance: NIVOLUMAB
     Route: 041
     Dates: start: 20231024
  5. YERVOY [Suspect]
     Active Substance: IPILIMUMAB
     Indication: Malignant melanoma
     Route: 041
     Dates: start: 20231024
  6. DABRAFENIB MESYLATE [Concomitant]
     Active Substance: DABRAFENIB MESYLATE
     Indication: Malignant melanoma
     Route: 065
     Dates: start: 20231205
  7. TRAMETINIB DIMETHYL SULFOXIDE [Concomitant]
     Active Substance: TRAMETINIB DIMETHYL SULFOXIDE
     Indication: Malignant melanoma
     Route: 065
     Dates: start: 20231205

REACTIONS (3)
  - Serous retinal detachment [Unknown]
  - Pneumonia [Unknown]
  - Erythema nodosum [Unknown]

NARRATIVE: CASE EVENT DATE: 20231102
